FAERS Safety Report 24591402 (Version 1)
Quarter: 2024Q4

REPORT INFORMATION
  Report Type: Report from Study
  Country: GR (occurrence: GR)
  Receive Date: 20241108
  Receipt Date: 20241108
  Transmission Date: 20250115
  Serious: Yes (Other)
  Sender: CELLTRION
  Company Number: GR-CELLTRION INC.-2023GR017254

PATIENT

DRUGS (6)
  1. INFLIXIMAB-DYYB [Suspect]
     Active Substance: INFLIXIMAB-DYYB
     Indication: Ankylosing spondylitis
     Dosage: 120 MG, EVERY 2 WEEKS
     Route: 058
     Dates: start: 20240809
  2. INFLIXIMAB-DYYB [Suspect]
     Active Substance: INFLIXIMAB-DYYB
     Indication: Rheumatoid arthritis
     Dosage: 120 MG, EVERY 2 WEEKS
     Route: 058
     Dates: start: 20240920
  3. INFLIXIMAB-DYYB [Suspect]
     Active Substance: INFLIXIMAB-DYYB
     Dosage: 120 MG, EVERY 2 WEEKS
     Route: 058
     Dates: start: 20241018
  4. INFLIXIMAB [Suspect]
     Active Substance: INFLIXIMAB
     Indication: Ankylosing spondylitis
     Dosage: 500MG EVERY 6 WEEKS (5X100MG REMSIMA INFUSION/6 WEEKS)
     Route: 041
     Dates: start: 20230127, end: 202407
  5. INFLIXIMAB [Suspect]
     Active Substance: INFLIXIMAB
     Dosage: 500MG EVERY 6 WEEKS (5X100MG REMSIMA INFUSION/6 WEEKS)
     Route: 041
     Dates: start: 20230804
  6. CECLOR [Concomitant]
     Active Substance: CEFACLOR
     Indication: Product used for unknown indication
     Dosage: UNK

REACTIONS (3)
  - Varicose vein [Unknown]
  - Intentional dose omission [Unknown]
  - Overdose [Unknown]
